FAERS Safety Report 9031901 (Version 2)
Quarter: 2013Q1

REPORT INFORMATION
  Report Type: Spontaneous
  Country: US (occurrence: US)
  Receive Date: 20130125
  Receipt Date: 20130130
  Transmission Date: 20140127
  Serious: Yes (Other)
  Sender: FDA-Public Use
  Company Number: US-PURDUE-USA-2013-0097939

PATIENT
  Sex: Female

DRUGS (3)
  1. OXYCONTIN (NDA 22-272) [Suspect]
     Indication: PAIN
     Dosage: 120 MG, BID
     Route: 048
     Dates: start: 200911, end: 20130113
  2. OXYCODONE HCL IMMEDIATE RELEASE (91-490) [Concomitant]
     Indication: NEURALGIA
     Dosage: 15 MG, Q4H
     Route: 048
     Dates: start: 201210
  3. OXYCODONE HCL IMMEDIATE RELEASE (91-490) [Concomitant]
     Indication: INTERVERTEBRAL DISC PROTRUSION

REACTIONS (6)
  - Nerve injury [Unknown]
  - Neuralgia [Not Recovered/Not Resolved]
  - Road traffic accident [Unknown]
  - Unevaluable event [Unknown]
  - Intervertebral disc protrusion [Not Recovered/Not Resolved]
  - Lip disorder [Not Recovered/Not Resolved]
